FAERS Safety Report 13871028 (Version 1)
Quarter: 2017Q3

REPORT INFORMATION
  Report Type: Spontaneous
  Country: US (occurrence: None)
  Receive Date: 20170814
  Receipt Date: 20170814
  Transmission Date: 20171127
  Serious: No
  Sender: FDA-Public Use
  Company Number: None

PATIENT
  Age: 19 Year
  Sex: Female
  Weight: 63.5 kg

DRUGS (3)
  1. FLEXERIL [Concomitant]
     Active Substance: CYCLOBENZAPRINE HYDROCHLORIDE
  2. MOTRIN [Concomitant]
     Active Substance: IBUPROFEN
  3. NEXPLANON [Suspect]
     Active Substance: ETONOGESTREL
     Dates: start: 20150628, end: 20170814

REACTIONS (10)
  - Weight increased [None]
  - Panic attack [None]
  - Libido decreased [None]
  - Depression [None]
  - Acne [None]
  - Menorrhagia [None]
  - Menstrual disorder [None]
  - Anxiety [None]
  - Mood swings [None]
  - Crying [None]

NARRATIVE: CASE EVENT DATE: 20150628
